FAERS Safety Report 14780742 (Version 1)
Quarter: 2018Q2

REPORT INFORMATION
  Report Type: Spontaneous
  Country: DK (occurrence: DK)
  Receive Date: 20180419
  Receipt Date: 20180419
  Transmission Date: 20180711
  Serious: Yes (Congenital Anomaly)
  Sender: FDA-Public Use
  Company Number: DK-TEVA-2018-DK-880717

PATIENT
  Age: 6 Day
  Sex: Female

DRUGS (4)
  1. IMOZOP [Suspect]
     Active Substance: ZOPICLONE
     Indication: INSOMNIA
     Dosage: STRENGHT: 3.75 MG
     Route: 064
     Dates: start: 20171017, end: 20171029
  2. SERTRALIN ^KRKA^ [Suspect]
     Active Substance: SERTRALINE HYDROCHLORIDE
     Indication: DEPRESSION
     Dosage: STRENGTH: 50 MG
     Route: 064
     Dates: start: 20171017
  3. QUETIAPINE ^TEVA^ [Suspect]
     Active Substance: QUETIAPINE
     Indication: INSOMNIA
     Dosage: STRENGTH: 25 MG - DOSAGE: 1 TABLET AT 22 O^CLOCK IF NECESSARY TO INSOMNIA.
     Route: 064
     Dates: start: 20171027
  4. OXAZEPAM ^ALTERNOVA^ [Suspect]
     Active Substance: OXAZEPAM
     Indication: SEDATIVE THERAPY
     Dosage: STRENGTH: 15 MG. DOSIS: ? - 1 TABLET DAILY TO NIGHT
     Route: 064
     Dates: start: 20170908

REACTIONS (6)
  - Congenital hand malformation [Not Recovered/Not Resolved]
  - Foetal exposure during pregnancy [Recovered/Resolved]
  - Low set ears [Not Recovered/Not Resolved]
  - Congenital eyelid malformation [Not Recovered/Not Resolved]
  - Congenital foot malformation [Not Recovered/Not Resolved]
  - Retrognathia [Not Recovered/Not Resolved]
